FAERS Safety Report 19936313 (Version 1)
Quarter: 2021Q4

REPORT INFORMATION
  Report Type: Report from Study
  Country: None (occurrence: CO)
  Receive Date: 20211009
  Receipt Date: 20211009
  Transmission Date: 20220303
  Serious: Yes (Death)
  Sender: FDA-Public Use
  Company Number: CO-JNJFOC-20211008118

PATIENT
  Age: 55 Year
  Sex: Female
  Weight: 54 kg

DRUGS (1)
  1. IMBRUVICA [Suspect]
     Active Substance: IBRUTINIB
     Indication: Chronic lymphocytic leukaemia
     Dosage: THE MOST RECENT ADMINISTRATION PERFORMED ON 04/OCT/2021
     Route: 048
     Dates: start: 20191101

REACTIONS (1)
  - Death [Fatal]

NARRATIVE: CASE EVENT DATE: 20211004
